FAERS Safety Report 6167783-4 (Version None)
Quarter: 2009Q2

REPORT INFORMATION
  Report Type: 
  Country: None (occurrence: None)
  Receive Date: 20090427
  Receipt Date: 20090422
  Transmission Date: 20091009
  Serious: Yes (Hospitalization)
  Sender: FDA-Public Use
  Company Number: GR-JNJFOC-20090405504

PATIENT
  Age: 48 Year
  Sex: Female

DRUGS (4)
  1. IMODIUM [Suspect]
     Indication: DIARRHOEA
  2. TRUVADA [Concomitant]
     Indication: HIV INFECTION
  3. NORVIR [Concomitant]
     Indication: HIV INFECTION
  4. REYATAZ [Concomitant]
     Indication: HIV INFECTION

REACTIONS (3)
  - LARYNGEAL OEDEMA [None]
  - RASH [None]
  - SYNCOPE [None]
